FAERS Safety Report 12539936 (Version 1)
Quarter: 2016Q3

REPORT INFORMATION
  Report Type: Spontaneous
  Country: US (occurrence: None)
  Receive Date: 20160707
  Receipt Date: 20160707
  Transmission Date: 20161109
  Serious: No
  Sender: FDA-Public Use
  Company Number: None

PATIENT
  Age: 65 Year
  Sex: Male
  Weight: 95.26 kg

DRUGS (5)
  1. BAYER ASPIRIN [Concomitant]
     Active Substance: ASPIRIN
  2. SEPTICAINE WITH EPINEPHRINE [Suspect]
     Active Substance: ARTICAINE\EPINEPHRINE
     Indication: ANAESTHESIA PROCEDURE
  3. VITAMIN D [Concomitant]
     Active Substance: CHOLECALCIFEROL
  4. KRILL OIL [Concomitant]
     Active Substance: DIETARY SUPPLEMENT
  5. BIOTIN [Concomitant]
     Active Substance: BIOTIN

REACTIONS (4)
  - Pain [None]
  - Hypoaesthesia [None]
  - Trismus [None]
  - Muscle spasms [None]

NARRATIVE: CASE EVENT DATE: 20160506
